FAERS Safety Report 4482034-4 (Version None)
Quarter: 2004Q4

REPORT INFORMATION
  Report Type: 
  Country: None (occurrence: None)
  Receive Date: 20041020
  Receipt Date: 20041001
  Transmission Date: 20050328
  Serious: Yes (Death, Hospitalization)
  Sender: FDA-Public Use
  Company Number: EWC040940571

PATIENT
  Age: 73 Year
  Sex: Female
  Weight: 70 kg

DRUGS (6)
  1. GEMCITABINE HYDROCHLORIDE-IV (GEMCITABINE) [Suspect]
     Indication: BREAST CANCER
     Dosage: 2052 MG/2 OTHER
     Route: 050
     Dates: start: 20040709, end: 20040826
  2. DOXORUBICIN HCL [Suspect]
     Indication: BREAST CANCER
     Dosage: 102.6 MG/1 OTHER
     Route: 050
     Dates: start: 20040709, end: 20040919
  3. DACORTIN (PREDNISONE) [Concomitant]
  4. ATROVENT [Concomitant]
  5. VENTOLIN (SALBUTAMOL SULFATE) [Concomitant]
  6. OMEPRAZOLE [Concomitant]

REACTIONS (18)
  - ANAEMIA [None]
  - CANDIDIASIS [None]
  - CARDIAC DISORDER [None]
  - CARDIO-RESPIRATORY ARREST [None]
  - DYSPNOEA [None]
  - EJECTION FRACTION DECREASED [None]
  - GENERAL PHYSICAL HEALTH DETERIORATION [None]
  - MUCOSAL INFLAMMATION [None]
  - NEUTROPENIA [None]
  - OEDEMA [None]
  - ORTHOPNOEA [None]
  - PLEURITIC PAIN [None]
  - PYREXIA [None]
  - RESPIRATORY TRACT INFECTION [None]
  - STAPHYLOCOCCAL BACTERAEMIA [None]
  - TACHYPNOEA [None]
  - THROMBOCYTOPENIA [None]
  - WHITE BLOOD CELL COUNT DECREASED [None]
